FAERS Safety Report 8002095-5 (Version None)
Quarter: 2011Q4

REPORT INFORMATION
  Report Type: 
  Country: None (occurrence: None)
  Receive Date: 20111220
  Receipt Date: 20111208
  Transmission Date: 20120403
  Serious: Yes (Hospitalization)
  Sender: FDA-Public Use
  Company Number: 2011HGS-002940

PATIENT
  Age: 49 Year
  Sex: Female
  Weight: 93.8946 kg

DRUGS (15)
  1. VITAMIN E (TOCOPHEROL) (TOCOPHEROL) [Concomitant]
  2. VITAMIN B COMPLEX (B-KOMBLEX ^LECIVA^) (PYRIDOXINE HYDROCHLORIDE, THIA [Concomitant]
  3. PRADAXA (DABIGATRAN) (DABIGATRAN) [Concomitant]
  4. CARDIZEM (DILTIAZEM HYDROCHLORIDE) (DILTIAZEM HYDROCHLORIDE) [Concomitant]
  5. PLAQUENIL (HYDROXYCHLOROQUINE SULFATE) (HYDROXYCHLOROQUINE SULFATE) [Concomitant]
  6. CITRACAL PLUS VITAMIN D (CITRACAL + D) (ERGOCALCIFEROL, CALCIUM CITRAT [Concomitant]
  7. FOLIC ACID [Concomitant]
  8. IMITREX (SUMATRIPTAN SUCCINATE) (SUMATRIPTAN SUCCINATE) [Concomitant]
  9. BENLYSTA [Suspect]
     Dosage: 1 IN 4 WK, INTRAVENOUS DRIP
     Route: 041
  10. METOPROLOL SUCCINATE [Concomitant]
  11. PREDNISONE [Concomitant]
  12. BIOTIN (BIOTIN) (BIOTIN) [Concomitant]
  13. NEURONTIN [Concomitant]
  14. VITAMIN B12 (CYANOCOBALAMIN) (CYANOCOBALAMIN) [Concomitant]
  15. COREG (CARVEDILOL) (CARVEDILOL) [Concomitant]

REACTIONS (4)
  - URTICARIA [None]
  - VENTRICULAR FIBRILLATION [None]
  - SWOLLEN TONGUE [None]
  - ARRHYTHMIA [None]
